FAERS Safety Report 7379880-6 (Version None)
Quarter: 2011Q1

REPORT INFORMATION
  Report Type: 
  Country: None (occurrence: None)
  Receive Date: 20110329
  Receipt Date: 20110318
  Transmission Date: 20110831
  Serious: Yes (Hospitalization, Other)
  Sender: FDA-Public Use
  Company Number: US-AMGEN-USASP2011015130

PATIENT
  Age: 59 Year
  Sex: Female

DRUGS (20)
  1. SENSIPAR [Suspect]
     Indication: PRODUCT USED FOR UNKNOWN INDICATION
     Dosage: 60 MG, QD
  2. ASPIRIN [Concomitant]
     Dosage: 1 MG, UNK
  3. VENOFER [Concomitant]
     Dosage: 1 MG, UNK
  4. DULCOLAX [Concomitant]
     Dosage: UNK
  5. PLAVIX [Concomitant]
     Dosage: 1 MG, UNK
  6. PROVENTIL                          /00139501/ [Concomitant]
     Dosage: UNK
  7. COREG [Concomitant]
     Dosage: 1 MG, UNK
  8. MELATONIN [Concomitant]
     Dosage: 1 MG, UNK
  9. HECTOROL [Concomitant]
     Dosage: 1 A?G, UNK
  10. ADVAIR DISKUS 100/50 [Concomitant]
     Dosage: UNK
  11. NEPHROCAPS [Concomitant]
  12. BENADRYL [Concomitant]
  13. EPOGEN [Suspect]
     Indication: RENAL FAILURE CHRONIC
  14. PLETAL [Concomitant]
     Dosage: 1 MG, UNK
  15. RENVELA [Concomitant]
     Dosage: UNK
  16. NORVASC [Concomitant]
     Dosage: UNK
  17. TYLENOL (CAPLET) [Concomitant]
  18. ZESTRIL [Concomitant]
     Dosage: 1 MG, UNK
  19. MANNITOL [Concomitant]
  20. FOLIC ACID [Concomitant]
     Dosage: 1 MG, UNK

REACTIONS (4)
  - BRONCHITIS [None]
  - APLASIA PURE RED CELL [None]
  - HOSPITALISATION [None]
  - OSTEOMYELITIS [None]
